FAERS Safety Report 5466640-6 (Version None)
Quarter: 2007Q3

REPORT INFORMATION
  Report Type: 
  Country: None (occurrence: None)
  Receive Date: 20070921
  Receipt Date: 20070921
  Transmission Date: 20080115
  Serious: Yes (Death)
  Sender: FDA-Public Use
  Company Number: None

PATIENT
  Age: 44 Day

DRUGS (1)
  1. KALETRA [Suspect]
     Dosage: SOLUTION, CONCENTRATE

REACTIONS (4)
  - ACCIDENTAL OVERDOSE [None]
  - CARDIOGENIC SHOCK [None]
  - INCORRECT DOSE ADMINISTERED [None]
  - MEDICATION ERROR [None]
